FAERS Safety Report 16776998 (Version 1)
Quarter: 2019Q3

REPORT INFORMATION
  Report Type: Spontaneous
  Country: RO (occurrence: RO)
  Receive Date: 20190905
  Receipt Date: 20190905
  Transmission Date: 20191005
  Serious: Yes (Life-Threatening)
  Sender: FDA-Public Use
  Company Number: RO-BAYER-2019-162890

PATIENT
  Age: 52 Year
  Sex: Female

DRUGS (1)
  1. ULTRAVIST [Suspect]
     Active Substance: IOPROMIDE
     Indication: COMPUTERISED TOMOGRAM HEAD
     Dosage: 50 ML, QD
     Route: 042
     Dates: start: 20190903

REACTIONS (4)
  - Rash maculo-papular [Recovered/Resolved]
  - Tearfulness [Recovered/Resolved]
  - Tachycardia [Recovered/Resolved]
  - Pruritus [None]

NARRATIVE: CASE EVENT DATE: 20190903
